FAERS Safety Report 5815466-X (Version None)
Quarter: 2008Q3

REPORT INFORMATION
  Report Type: 
  Country: None (occurrence: None)
  Receive Date: 20080718
  Receipt Date: 20080708
  Transmission Date: 20090109
  Serious: Yes (Other)
  Sender: FDA-Public Use
  Company Number: JP-PFIZER INC-2008057065

PATIENT
  Sex: Female

DRUGS (3)
  1. HALCION [Suspect]
     Dosage: DAILY DOSE:.125MG
     Route: 048
  2. PAXIL [Concomitant]
     Route: 048
  3. MEILAX [Concomitant]
     Route: 048

REACTIONS (2)
  - JAUNDICE [None]
  - LIVER FUNCTION TEST ABNORMAL [None]
